FAERS Safety Report 8960442 (Version 1)
Quarter: 2012Q4

REPORT INFORMATION
  Report Type: Spontaneous
  Country: AE (occurrence: None)
  Receive Date: 20121211
  Receipt Date: 20121211
  Transmission Date: 20130627
  Serious: Yes (Life-Threatening, Other)
  Sender: FDA-Public Use
  Company Number: None

PATIENT
  Age: 21 Year
  Sex: Female
  Weight: 68.04 kg

DRUGS (1)
  1. IMPLANON [Suspect]
     Dates: start: 20120301, end: 20121231

REACTIONS (13)
  - Mental disorder [None]
  - Acne [None]
  - Furuncle [None]
  - Vision blurred [None]
  - Menorrhagia [None]
  - Increased tendency to bruise [None]
  - Mood swings [None]
  - Sensation of heaviness [None]
  - Anger [None]
  - Depression [None]
  - Crying [None]
  - Weight increased [None]
  - Dyspareunia [None]
